FAERS Safety Report 8763721 (Version 1)
Quarter: 2012Q4

REPORT INFORMATION
  Report Type: 
  Country: US (occurrence: US)
  Receive Date: 20120828
  Receipt Date: 20120828
  Transmission Date: 20130627
  Serious: No
  Sender: FDA-Public Use
  Company Number: US-ENDO PHARMACEUTICALS INC.-OPCR20121753

PATIENT
  Age: 43 None
  Sex: Male

DRUGS (3)
  1. OPANA ER 20MG [Suspect]
     Indication: BACK PAIN
     Route: 048
     Dates: start: 201208
  2. OXYCODONE (ACTAVIS) [Concomitant]
     Indication: PRODUCT USED FOR UNKNOWN INDICATION
     Dosage: UNKNOWN
     Route: 048
  3. OPANA ER 20MG [Concomitant]
     Indication: BACK PAIN
     Route: 048
     Dates: start: 2009, end: 201208

REACTIONS (2)
  - Asthma [Not Recovered/Not Resolved]
  - Medication residue [Not Recovered/Not Resolved]
